FAERS Safety Report 5517916-5 (Version None)
Quarter: 2007Q4

REPORT INFORMATION
  Report Type: 
  Country: None (occurrence: None)
  Receive Date: 20071113
  Receipt Date: 20071031
  Transmission Date: 20080405
  Serious: Yes (Other)
  Sender: FDA-Public Use
  Company Number: CIP07000961

PATIENT
  Sex: Female

DRUGS (3)
  1. ACTONEL [Suspect]
     Dosage: 35 MG, ONCE WEEKLY, ORAL
     Route: 048
     Dates: start: 20050124
  2. SYNTHROID [Concomitant]
  3. CALCIUM D /00944201/ (COLECALCIFEROL, CALCIUM CARBONATE) [Concomitant]

REACTIONS (7)
  - EATING DISORDER [None]
  - ECCHYMOSIS [None]
  - MOUTH CYST [None]
  - NASAL CYST [None]
  - OSTEONECROSIS [None]
  - RHINORRHOEA [None]
  - SINUSITIS FUNGAL [None]
